FAERS Safety Report 20731161 (Version 1)
Quarter: 2022Q2

REPORT INFORMATION
  Report Type: Spontaneous
  Country: IT (occurrence: IT)
  Receive Date: 20220420
  Receipt Date: 20220420
  Transmission Date: 20220721
  Serious: Yes (Disabling)
  Sender: FDA-Public Use
  Company Number: IT-GILEAD-2022-0578076

PATIENT
  Age: 58 Year
  Sex: Male

DRUGS (1)
  1. RANEXA [Suspect]
     Active Substance: RANOLAZINE
     Indication: Angina pectoris
     Dosage: UNK
     Route: 065

REACTIONS (1)
  - Keratolysis exfoliativa acquired [Recovered/Resolved]
